FAERS Safety Report 9225328 (Version 1)
Quarter: 2013Q1

REPORT INFORMATION
  Report Type: Spontaneous
  Country: US (occurrence: None)
  Receive Date: 20121003
  Receipt Date: 20121003
  Transmission Date: 20140127
  Serious: Yes (Hospitalization)
  Sender: FDA-Public Use
  Company Number: US-1188071

PATIENT
  Age: 91 Year
  Sex: Female

DRUGS (16)
  1. TOBRADEX OPHTHALMIC SUSPENSION (TOBRADEX SUSPENSION) [Suspect]
     Indication: OCULAR HYPERAEMIA
     Dosage: 1 GTT TID OU OPHTHALMIC?
     Route: 047
     Dates: start: 20110902, end: 20110902
  2. TOBRADEX OPHTHALMIC SUSPENSION (TOBRADEX SUSPENSION) [Suspect]
     Dosage: 1 GTT TID OU OPHTHALMIC?
     Route: 047
     Dates: start: 20110902, end: 20110902
  3. SYSTANE [Concomitant]
  4. CELEBREX [Concomitant]
  5. ATENOLOL [Concomitant]
  6. ACTONEL [Concomitant]
  7. ARICEPT [Concomitant]
  8. ASPIRIN [Concomitant]
  9. PEPCID [Concomitant]
  10. VITAMIN C [Concomitant]
  11. CALCIUM [Concomitant]
  12. COLACE [Concomitant]
  13. CLARITIN [Concomitant]
  14. VITAMIN D3 [Concomitant]
  15. CENTRUM [Concomitant]
  16. BENADRYL [Concomitant]

REACTIONS (7)
  - Abdominal pain upper [None]
  - Dizziness [None]
  - Vomiting [None]
  - Diarrhoea [None]
  - Pruritus [None]
  - Headache [None]
  - Vision blurred [None]
